FAERS Safety Report 19573672 (Version 3)
Quarter: 2021Q3

REPORT INFORMATION
  Report Type: Report from Study
  Country: SE (occurrence: SE)
  Receive Date: 20210717
  Receipt Date: 20210930
  Transmission Date: 20211014
  Serious: Yes (Hospitalization, Other)
  Sender: FDA-Public Use
  Company Number: SE-TAKEDA-2021TUS041966

PATIENT
  Age: 56 Year
  Sex: Female

DRUGS (49)
  1. TEDUGLUTIDE [Suspect]
     Active Substance: TEDUGLUTIDE
     Dosage: 0.02 MILLIGRAM/KILOGRAM
     Route: 065
     Dates: start: 20191030, end: 20191030
  2. TEDUGLUTIDE [Suspect]
     Active Substance: TEDUGLUTIDE
     Dosage: 0.04 MILLIGRAM/KILOGRAM
     Route: 065
     Dates: start: 20191102, end: 20191102
  3. TEDUGLUTIDE [Suspect]
     Active Substance: TEDUGLUTIDE
     Dosage: 0.04 MILLIGRAM/KILOGRAM
     Route: 065
     Dates: start: 20191105, end: 20191105
  4. CATAPRESAN [Concomitant]
     Active Substance: CLONIDINE
     Dosage: 75 MICROGRAM
     Route: 042
     Dates: start: 20210616, end: 20210617
  5. TEDUGLUTIDE [Suspect]
     Active Substance: TEDUGLUTIDE
     Dosage: 0.030 MILLIGRAM/KILOGRAM
     Route: 065
     Dates: start: 20191031, end: 20191031
  6. TEDUGLUTIDE [Suspect]
     Active Substance: TEDUGLUTIDE
     Dosage: 0.04 MILLIGRAM/KILOGRAM
     Route: 065
     Dates: start: 20191105, end: 20191105
  7. CIPROFLOXACIN SANDOZ [Concomitant]
     Active Substance: CIPROFLOXACIN
     Indication: ACINETOBACTER INFECTION
     Dosage: 500 MILLIGRAM, QD
     Route: 048
     Dates: start: 20201219, end: 20201231
  8. FURIX [Concomitant]
     Dosage: 10 MILLIGRAM PER MILLILITRE
     Route: 042
     Dates: start: 20210613, end: 20210622
  9. TEDUGLUTIDE [Suspect]
     Active Substance: TEDUGLUTIDE
     Indication: SHORT-BOWEL SYNDROME
     Dosage: 0.020 MILLIGRAM/KILOGRAM, QD
     Route: 065
     Dates: start: 20191029, end: 20191029
  10. TEDUGLUTIDE [Suspect]
     Active Substance: TEDUGLUTIDE
     Dosage: 0.02 MILLIGRAM/KILOGRAM
     Route: 065
     Dates: start: 20191030, end: 20191030
  11. TEDUGLUTIDE [Suspect]
     Active Substance: TEDUGLUTIDE
     Dosage: 0.03 MILLIGRAM/KILOGRAM
     Route: 065
     Dates: start: 20191101, end: 20191101
  12. DOXAZOSIN 1 A PHARMA [Concomitant]
     Active Substance: DOXAZOSIN MESYLATE
     Indication: HYPERTENSION
     Dosage: 4.00 MILLIGRAM, QD
     Route: 048
     Dates: start: 20210526, end: 20210616
  13. FURIX [Concomitant]
     Indication: HYPERTENSION
     Dosage: 80 MILLIGRAM, BID
     Route: 048
     Dates: start: 20210618, end: 20210624
  14. FURIX [Concomitant]
     Dosage: 80 MILLIGRAM, QD
     Route: 048
     Dates: start: 20201112, end: 20210614
  15. TEDUGLUTIDE [Suspect]
     Active Substance: TEDUGLUTIDE
     Dosage: 0.03 MILLIGRAM/KILOGRAM
     Route: 065
     Dates: start: 20191101, end: 20191101
  16. TEDUGLUTIDE [Suspect]
     Active Substance: TEDUGLUTIDE
     Dosage: 0.04 MILLIGRAM/KILOGRAM
     Route: 065
     Dates: start: 20191102, end: 20191102
  17. TEDUGLUTIDE [Suspect]
     Active Substance: TEDUGLUTIDE
     Dosage: 0.04 MILLIGRAM/KILOGRAM
     Route: 065
     Dates: start: 20191104, end: 20191104
  18. TEDUGLUTIDE [Suspect]
     Active Substance: TEDUGLUTIDE
     Dosage: 0.04 MILLIGRAM/KILOGRAM
     Route: 065
     Dates: start: 20191104, end: 20191104
  19. TEDUGLUTIDE [Suspect]
     Active Substance: TEDUGLUTIDE
     Dosage: 0.04 MILLIGRAM/KILOGRAM
     Route: 065
     Dates: start: 20191104, end: 20191104
  20. FLAGYL [Concomitant]
     Active Substance: METRONIDAZOLE\METRONIDAZOLE HYDROCHLORIDE
     Indication: OVERGROWTH BACTERIAL
  21. TEDUGLUTIDE [Suspect]
     Active Substance: TEDUGLUTIDE
     Dosage: 0.02 MILLIGRAM/KILOGRAM
     Route: 065
     Dates: start: 20191030, end: 20191030
  22. TEDUGLUTIDE [Suspect]
     Active Substance: TEDUGLUTIDE
     Dosage: 0.04 MILLIGRAM/KILOGRAM
     Route: 065
     Dates: start: 20191103, end: 20191103
  23. TEDUGLUTIDE [Suspect]
     Active Substance: TEDUGLUTIDE
     Dosage: 0.04 MILLIGRAM/KILOGRAM
     Route: 065
     Dates: start: 20191103, end: 20191103
  24. TEDUGLUTIDE [Suspect]
     Active Substance: TEDUGLUTIDE
     Dosage: 0.04 MILLIGRAM/KILOGRAM
     Route: 065
     Dates: start: 20191104, end: 20191104
  25. TEDUGLUTIDE [Suspect]
     Active Substance: TEDUGLUTIDE
     Dosage: 0.05 MILLIGRAM/KILOGRAM
     Route: 065
     Dates: start: 20191106
  26. LOKELMA [Concomitant]
     Active Substance: SODIUM ZIRCONIUM CYCLOSILICATE
     Indication: BLOOD POTASSIUM
     Dosage: 10 GRAM, BID
     Route: 048
     Dates: start: 20201208
  27. FLAGYL [Concomitant]
     Active Substance: METRONIDAZOLE\METRONIDAZOLE HYDROCHLORIDE
     Indication: SHORT-BOWEL SYNDROME
     Dosage: 400 MILLIGRAM, BID
     Route: 048
     Dates: start: 20210729, end: 20210809
  28. TEDUGLUTIDE [Suspect]
     Active Substance: TEDUGLUTIDE
     Indication: SHORT-BOWEL SYNDROME
     Dosage: 0.020 MILLIGRAM/KILOGRAM, QD
     Route: 065
     Dates: start: 20191029, end: 20191029
  29. TEDUGLUTIDE [Suspect]
     Active Substance: TEDUGLUTIDE
     Dosage: 0.030 MILLIGRAM/KILOGRAM
     Route: 065
     Dates: start: 20191031, end: 20191031
  30. TEDUGLUTIDE [Suspect]
     Active Substance: TEDUGLUTIDE
     Dosage: 0.03 MILLIGRAM/KILOGRAM
     Route: 065
     Dates: start: 20191101, end: 20191101
  31. TEDUGLUTIDE [Suspect]
     Active Substance: TEDUGLUTIDE
     Dosage: 0.04 MILLIGRAM/KILOGRAM
     Route: 065
     Dates: start: 20191105, end: 20191105
  32. TEDUGLUTIDE [Suspect]
     Active Substance: TEDUGLUTIDE
     Dosage: 0.04 MILLIGRAM/KILOGRAM
     Route: 065
     Dates: start: 20191105, end: 20191105
  33. TEDUGLUTIDE [Suspect]
     Active Substance: TEDUGLUTIDE
     Dosage: 0.05 MILLIGRAM/KILOGRAM
     Route: 065
     Dates: start: 20191106
  34. TEDUGLUTIDE [Suspect]
     Active Substance: TEDUGLUTIDE
     Dosage: 0.05 MILLIGRAM/KILOGRAM
     Route: 065
     Dates: start: 20191106
  35. TIENAM [Concomitant]
     Active Substance: CILASTATIN SODIUM\IMIPENEM
     Indication: ACINETOBACTER INFECTION
     Dosage: 500 MILLIGRAM, BID
     Route: 042
     Dates: start: 20201214, end: 20201219
  36. CATAPRESAN [Concomitant]
     Active Substance: CLONIDINE
     Dosage: 75 MICROGRAM, QD
     Route: 048
     Dates: start: 20210618, end: 20210618
  37. TEDUGLUTIDE [Suspect]
     Active Substance: TEDUGLUTIDE
     Indication: SHORT-BOWEL SYNDROME
     Dosage: 0.020 MILLIGRAM/KILOGRAM, QD
     Route: 065
     Dates: start: 20191029, end: 20191029
  38. TEDUGLUTIDE [Suspect]
     Active Substance: TEDUGLUTIDE
     Indication: SHORT-BOWEL SYNDROME
     Dosage: 0.020 MILLIGRAM/KILOGRAM, QD
     Route: 065
     Dates: start: 20191029, end: 20191029
  39. TEDUGLUTIDE [Suspect]
     Active Substance: TEDUGLUTIDE
     Dosage: 0.03 MILLIGRAM/KILOGRAM
     Route: 065
     Dates: start: 20191101, end: 20191101
  40. TEDUGLUTIDE [Suspect]
     Active Substance: TEDUGLUTIDE
     Dosage: 0.04 MILLIGRAM/KILOGRAM
     Route: 065
     Dates: start: 20191102, end: 20191102
  41. TEDUGLUTIDE [Suspect]
     Active Substance: TEDUGLUTIDE
     Dosage: 0.04 MILLIGRAM/KILOGRAM
     Route: 065
     Dates: start: 20191102, end: 20191102
  42. TEDUGLUTIDE [Suspect]
     Active Substance: TEDUGLUTIDE
     Dosage: 0.04 MILLIGRAM/KILOGRAM
     Route: 065
     Dates: start: 20191103, end: 20191103
  43. TEDUGLUTIDE [Suspect]
     Active Substance: TEDUGLUTIDE
     Dosage: 0.04 MILLIGRAM/KILOGRAM
     Route: 065
     Dates: start: 20191103, end: 20191103
  44. TEDUGLUTIDE [Suspect]
     Active Substance: TEDUGLUTIDE
     Dosage: 0.05 MILLIGRAM/KILOGRAM
     Route: 065
     Dates: start: 20191106
  45. TEDUGLUTIDE [Suspect]
     Active Substance: TEDUGLUTIDE
     Dosage: 0.02 MILLIGRAM/KILOGRAM
     Route: 065
     Dates: start: 20191030, end: 20191030
  46. TEDUGLUTIDE [Suspect]
     Active Substance: TEDUGLUTIDE
     Dosage: 0.030 MILLIGRAM/KILOGRAM
     Route: 065
     Dates: start: 20191031, end: 20191031
  47. TEDUGLUTIDE [Suspect]
     Active Substance: TEDUGLUTIDE
     Dosage: 0.030 MILLIGRAM/KILOGRAM
     Route: 065
     Dates: start: 20191031, end: 20191031
  48. CEFTRIAXON MIP [Concomitant]
     Indication: ACINETOBACTER INFECTION
     Dosage: 2 GRAM, QD
     Route: 042
     Dates: start: 20201211, end: 20201213
  49. CATAPRESAN [Concomitant]
     Active Substance: CLONIDINE
     Indication: HYPERTENSION
     Dosage: 300 MICROGRAM
     Route: 042
     Dates: start: 20210614, end: 20210614

REACTIONS (7)
  - Hypertensive encephalopathy [Recovered/Resolved]
  - Acinetobacter infection [Recovered/Resolved]
  - Lymphadenitis [Not Recovered/Not Resolved]
  - Headache [Recovered/Resolved]
  - Hypercalcaemia [Not Recovered/Not Resolved]
  - Pruritus [Recovered/Resolved]
  - Blood alkaline phosphatase increased [Recovering/Resolving]

NARRATIVE: CASE EVENT DATE: 20200811
